FAERS Safety Report 23604618 (Version 2)
Quarter: 2024Q2

REPORT INFORMATION
  Report Type: Other
  Country: CA (occurrence: CA)
  Receive Date: 20240307
  Receipt Date: 20240529
  Transmission Date: 20240715
  Serious: No
  Sender: FDA-Public Use
  Company Number: CA-TOLMAR, INC.-24CA047016

PATIENT
  Age: 73 Year
  Sex: Male

DRUGS (4)
  1. ELIGARD [Suspect]
     Active Substance: LEUPROLIDE ACETATE
     Indication: Prostate cancer
     Dosage: 22.5 MILLIGRAM, Q 3 MONTH
     Route: 058
     Dates: start: 20240216
  2. ELIGARD [Suspect]
     Active Substance: LEUPROLIDE ACETATE
     Dosage: 22.5 MILLIGRAM, Q 3 MONTH
     Route: 058
     Dates: start: 20240508
  3. ELIGARD [Suspect]
     Active Substance: LEUPROLIDE ACETATE
     Indication: Prostate cancer
     Dosage: UNK
  4. RADIATION THERAPY [Suspect]
     Active Substance: RADIATION THERAPY
     Indication: Prostate cancer
     Dosage: UNK

REACTIONS (2)
  - Post procedural diarrhoea [Unknown]
  - Injection site pain [Recovered/Resolved]

NARRATIVE: CASE EVENT DATE: 20240216
